FAERS Safety Report 6045646-2 (Version None)
Quarter: 2009Q1

REPORT INFORMATION
  Report Type: 
  Country: None (occurrence: None)
  Receive Date: 20090121
  Receipt Date: 20090115
  Transmission Date: 20090719
  Serious: Yes (Life-Threatening)
  Sender: FDA-Public Use
  Company Number: IT-NOVOPROD-283284

PATIENT
  Sex: Female

DRUGS (2)
  1. ACTRAPHANE 30 [Suspect]
     Indication: DIABETES MELLITUS
     Dosage: 1 IU, QD
     Route: 058
     Dates: start: 20070601, end: 20081114
  2. LANTUS [Suspect]
     Dosage: 1 IU, QD
     Route: 058
     Dates: start: 20070601, end: 20081114

REACTIONS (3)
  - ACCIDENTAL OVERDOSE [None]
  - HYPOGLYCAEMIA [None]
  - PSYCHOMOTOR SKILLS IMPAIRED [None]
